FAERS Safety Report 8431234-7 (Version None)
Quarter: 2012Q2

REPORT INFORMATION
  Report Type: 
  Country: None (occurrence: None)
  Receive Date: 20120613
  Receipt Date: 20120604
  Transmission Date: 20120825
  Serious: Yes (Hospitalization)
  Sender: FDA-Public Use
  Company Number: US-BRISTOL-MYERS SQUIBB COMPANY-16660094

PATIENT
  Age: 40 Year
  Sex: Female

DRUGS (1)
  1. SPRYCEL [Suspect]
     Dates: start: 20120501

REACTIONS (1)
  - APPENDICECTOMY [None]
